FAERS Safety Report 14348686 (Version 1)
Quarter: 2018Q1

REPORT INFORMATION
  Report Type: Spontaneous
  Country: IL (occurrence: IL)
  Receive Date: 20180104
  Receipt Date: 20180104
  Transmission Date: 20180509
  Serious: Yes (Hospitalization)
  Sender: FDA-Public Use
  Company Number: PHHY2017IL191464

PATIENT
  Age: 36 Year
  Sex: Female

DRUGS (3)
  1. UTROGESTAN [Suspect]
     Active Substance: PROGESTERONE
     Indication: THROMBOSIS PROPHYLAXIS
     Dosage: 250 MG, BID
     Route: 067
  2. CLEXANE [Suspect]
     Active Substance: ENOXAPARIN SODIUM
     Indication: THROMBOSIS PROPHYLAXIS
     Dosage: 40 MG, QD
     Route: 058
  3. BETAMETHASONE. [Suspect]
     Active Substance: BETAMETHASONE
     Indication: THROMBOSIS PROPHYLAXIS
     Dosage: 2 DF, UNK
     Route: 030

REACTIONS (8)
  - Abdominal pain [Unknown]
  - Chills [Unknown]
  - Tachycardia [Unknown]
  - Serratia infection [Recovering/Resolving]
  - Preterm premature rupture of membranes [Unknown]
  - Pyrexia [Unknown]
  - Maternal exposure during pregnancy [Unknown]
  - Premature delivery [Unknown]
